FAERS Safety Report 7857882-0 (Version None)
Quarter: 2011Q4

REPORT INFORMATION
  Report Type: 
  Country: None (occurrence: None)
  Receive Date: 20111027
  Receipt Date: 20110221
  Transmission Date: 20120403
  Serious: No
  Sender: FDA-Public Use
  Company Number: US-BAYER-2011-017213

PATIENT
  Sex: Female
  Weight: 49 kg

DRUGS (3)
  1. VITAMIN TAB [Concomitant]
  2. ALEVE (CAPLET) [Suspect]
     Indication: PAIN
     Dosage: DAILY
     Route: 048
     Dates: start: 20110219, end: 20110221
  3. REMERON [Concomitant]

REACTIONS (4)
  - NAUSEA [None]
  - ABDOMINAL DISCOMFORT [None]
  - VISION BLURRED [None]
  - DIZZINESS [None]
